FAERS Safety Report 24221272 (Version 3)
Quarter: 2024Q3

REPORT INFORMATION
  Report Type: Report from Study
  Country: GR (occurrence: GR)
  Receive Date: 20240819
  Receipt Date: 20240909
  Transmission Date: 20241017
  Serious: Yes (Hospitalization)
  Sender: ROCHE
  Company Number: GR-BoehringerIngelheim-2024-BI-044311

PATIENT
  Age: 55 Year
  Sex: Male

DRUGS (1)
  1. ALTEPLASE [Suspect]
     Active Substance: ALTEPLASE
     Indication: Intraventricular haemorrhage
     Dosage: INTRAVENTRICULAR?5 DOSES
     Route: 065

REACTIONS (2)
  - Unintentional medical device removal [Unknown]
  - Klebsiella infection [Unknown]
